FAERS Safety Report 9404030 (Version 1)
Quarter: 2013Q3

REPORT INFORMATION
  Report Type: Spontaneous
  Country: US (occurrence: US)
  Receive Date: 20130717
  Receipt Date: 20130717
  Transmission Date: 20140515
  Serious: Yes (Other)
  Sender: FDA-Public Use
  Company Number: US-ELI_LILLY_AND_COMPANY-US201307003984

PATIENT
  Sex: Female

DRUGS (3)
  1. DULOXETINE HYDROCHLORIDE [Suspect]
     Indication: DEPRESSION
     Dosage: 60 MG, QD
  2. DULOXETINE HYDROCHLORIDE [Suspect]
     Indication: ARTHRITIS
  3. ABILIFY [Suspect]
     Dosage: UNK, UNKNOWN

REACTIONS (5)
  - Angiopathy [Unknown]
  - Skin discolouration [Unknown]
  - Insomnia [Unknown]
  - Psychomotor hyperactivity [Unknown]
  - Anxiety [Unknown]
